FAERS Safety Report 21179005 (Version 3)
Quarter: 2022Q4

REPORT INFORMATION
  Report Type: Spontaneous
  Country: US (occurrence: US)
  Receive Date: 20220805
  Receipt Date: 20221116
  Transmission Date: 20230112
  Serious: Yes (Hospitalization)
  Sender: FDA-Public Use
  Company Number: US-GLAXOSMITHKLINE-US2022112720

PATIENT

DRUGS (3)
  1. UMECLIDINIUM BROMIDE\VILANTEROL TRIFENATATE [Suspect]
     Active Substance: UMECLIDINIUM BROMIDE\VILANTEROL TRIFENATATE
     Indication: Product used for unknown indication
     Dosage: UNK UNK, QD, 62.5/25MCG ONCE A DAY
     Dates: start: 20220725
  2. ADVAIR DISKUS [Suspect]
     Active Substance: FLUTICASONE PROPIONATE\SALMETEROL XINAFOATE
     Indication: Product used for unknown indication
     Dosage: UNK UNK, BID,UNKNOWN STRENGTH TWICE A DAY
     Dates: start: 2011, end: 2020
  3. BREO ELLIPTA [Suspect]
     Active Substance: FLUTICASONE FUROATE\VILANTEROL TRIFENATATE
     Indication: Product used for unknown indication
     Dosage: UNK UNK, QD,200/25MCG ONCE A DAY
     Dates: start: 2020, end: 202204

REACTIONS (12)
  - Hospitalisation [Not Recovered/Not Resolved]
  - Cough [Not Recovered/Not Resolved]
  - Dyspnoea [Unknown]
  - Oral pain [Unknown]
  - Gingival bleeding [Unknown]
  - Hyperkeratosis [Unknown]
  - Oral candidiasis [Unknown]
  - Erythema [Unknown]
  - Dry mouth [Unknown]
  - Bacterial gingivitis [Unknown]
  - Gingival pain [Unknown]
  - Treatment noncompliance [Unknown]

NARRATIVE: CASE EVENT DATE: 20200101
